FAERS Safety Report 5245141-4 (Version None)
Quarter: 2007Q1

REPORT INFORMATION
  Report Type: 
  Country: None (occurrence: None)
  Receive Date: 20070223
  Receipt Date: 20070215
  Transmission Date: 20070707
  Serious: Yes (Death)
  Sender: FDA-Public Use
  Company Number: IE-PURDUE-GBR_2007_0002819

PATIENT
  Age: 70 Year
  Sex: Female

DRUGS (1)
  1. MST CONTINUS TABLETS [Suspect]
     Indication: OSTEOARTHRITIS
     Dosage: 20 MG, BID
     Route: 065

REACTIONS (3)
  - CARDIAC FAILURE [None]
  - DRUG LEVEL INCREASED [None]
  - INCORRECT DOSE ADMINISTERED [None]
